FAERS Safety Report 7017754-0 (Version None)
Quarter: 2010Q3

REPORT INFORMATION
  Report Type: 
  Country: None (occurrence: None)
  Receive Date: 20100928
  Receipt Date: 20100922
  Transmission Date: 20110219
  Serious: Yes (Other)
  Sender: FDA-Public Use
  Company Number: GB-WYE-G06714710

PATIENT
  Age: 58 Year
  Sex: Female
  Weight: 85 kg

DRUGS (8)
  1. LANSOPRAZOLE [Suspect]
     Indication: GASTROOESOPHAGEAL REFLUX DISEASE
     Dosage: 30MG, UNKNOWN FREQUENCY
     Route: 048
     Dates: start: 19980101, end: 20060801
  2. CITALOPRAM HYDROBROMIDE [Concomitant]
     Dosage: UNKNOWN
  3. WARFARIN [Concomitant]
     Dosage: UNKNOWN
  4. IRBESARTAN [Concomitant]
     Dosage: UNKNOWN
  5. LOPERAMIDE [Concomitant]
     Dosage: UNKNOWN
  6. VERAPAMIL [Concomitant]
     Dosage: UNKNOWN
  7. OMEPRAZOLE [Suspect]
     Indication: GASTROOESOPHAGEAL REFLUX DISEASE
     Dosage: UNKNOWN
     Route: 048
     Dates: start: 20061101, end: 20100625
  8. DIGOXIN [Concomitant]
     Dosage: UNKNOWN

REACTIONS (2)
  - DIARRHOEA [None]
  - HYPOMAGNESAEMIA [None]
